FAERS Safety Report 5518914-8 (Version None)
Quarter: 2007Q4

REPORT INFORMATION
  Report Type: 
  Country: None (occurrence: None)
  Receive Date: 20071114
  Receipt Date: 20071015
  Transmission Date: 20080405
  Serious: Yes (Hospitalization)
  Sender: FDA-Public Use
  Company Number: US-JNJFOC-20070804925

PATIENT
  Age: 75 Year
  Sex: Male
  Weight: 73.0291 kg

DRUGS (3)
  1. DACOGEN [Suspect]
     Indication: MYELODYSPLASTIC SYNDROME
     Dosage: CYCLE 1
  2. EPOGEN [Concomitant]
  3. NEUPOGEN [Concomitant]

REACTIONS (11)
  - BLOOD PRESSURE DIASTOLIC DECREASED [None]
  - BODY TINEA [None]
  - CONTUSION [None]
  - FEBRILE NEUTROPENIA [None]
  - INTRAVASCULAR HAEMOLYSIS [None]
  - PLEURAL EFFUSION [None]
  - PNEUMONIA PRIMARY ATYPICAL [None]
  - SKIN ULCER [None]
  - TESTICULAR SWELLING [None]
  - TINEA CRURIS [None]
  - WHITE BLOOD CELL COUNT DECREASED [None]
